FAERS Safety Report 10069211 (Version 2)
Quarter: 2014Q2

REPORT INFORMATION
  Report Type: Spontaneous
  Country: US (occurrence: US)
  Receive Date: 20140409
  Receipt Date: 20140409
  Transmission Date: 20141212
  Serious: No
  Sender: FDA-Public Use
  Company Number: US-ASTELLAS-2013US010853

PATIENT
  Sex: Female

DRUGS (2)
  1. PROTOPIC [Suspect]
     Indication: ROSACEA
     Dosage: 0.1 %, BID
     Route: 061
     Dates: start: 20130928, end: 20131004
  2. PROTOPIC [Suspect]
     Indication: MECHANICAL URTICARIA

REACTIONS (8)
  - Off label use [Unknown]
  - Condition aggravated [Unknown]
  - Ocular hyperaemia [Recovered/Resolved]
  - Blister [Recovered/Resolved]
  - Pain [Recovered/Resolved]
  - Swelling face [Recovered/Resolved]
  - Erythema [Recovered/Resolved]
  - Burning sensation [Recovered/Resolved]
